FAERS Safety Report 6511171-5 (Version None)
Quarter: 2009Q4

REPORT INFORMATION
  Report Type: 
  Country: None (occurrence: None)
  Receive Date: 20091217
  Receipt Date: 20091208
  Transmission Date: 20100525
  Serious: Yes (Death)
  Sender: FDA-Public Use
  Company Number: 2009AL007658

PATIENT
  Age: 24 Year
  Sex: Female

DRUGS (3)
  1. BUPROPION HCL [Suspect]
  2. HYDROXYBUPROPION [Concomitant]
  3. ETHANOL [Concomitant]

REACTIONS (3)
  - BLOOD ETHANOL INCREASED [None]
  - CARDIO-RESPIRATORY ARREST [None]
  - INTENTIONAL OVERDOSE [None]
